FAERS Safety Report 23564143 (Version 3)
Quarter: 2024Q3

REPORT INFORMATION
  Report Type: Spontaneous
  Country: DO (occurrence: DO)
  Receive Date: 20240226
  Receipt Date: 20240822
  Transmission Date: 20241016
  Serious: Yes (Death, Hospitalization)
  Sender: JOHNSON AND JOHNSON
  Company Number: DO-JNJFOC-20240262088

PATIENT
  Age: 32 Year
  Sex: Female
  Weight: 35 kg

DRUGS (1)
  1. STELARA [Suspect]
     Active Substance: USTEKINUMAB
     Indication: Crohn^s disease
     Dosage: DOSE WAS ADMINISTERED IN INFUSION SALT BY A NURSE.
     Route: 040
     Dates: start: 20240130, end: 20240130

REACTIONS (2)
  - Sepsis [Fatal]
  - Gastrointestinal perforation [Fatal]

NARRATIVE: CASE EVENT DATE: 20240201
